FAERS Safety Report 7629975-4 (Version None)
Quarter: 2011Q3

REPORT INFORMATION
  Report Type: 
  Country: None (occurrence: None)
  Receive Date: 20110722
  Receipt Date: 20110720
  Transmission Date: 20111222
  Serious: Yes (Hospitalization)
  Sender: FDA-Public Use
  Company Number: US-MERCK-1105USA03753

PATIENT
  Age: 60 Year
  Sex: Female

DRUGS (8)
  1. FOSAMAX [Suspect]
     Indication: OSTEOPOROSIS
     Route: 048
     Dates: start: 20000801, end: 20090501
  2. [THERAPY UNSPECIFIED] [Concomitant]
     Route: 065
  3. CALCIUM (UNSPECIFIED) AND VITAMIN D (UNSPECIFIED) [Concomitant]
     Route: 048
     Dates: start: 20080101
  4. PROTONIX [Concomitant]
     Route: 048
     Dates: start: 20060201
  5. TRIVITA NOPALEA JUICE [Concomitant]
     Route: 048
     Dates: start: 20080101
  6. TRIVITA JOINT COMPLEX [Concomitant]
     Route: 048
     Dates: start: 20080101
  7. HORMONES (UNSPECIFIED) [Concomitant]
     Route: 065
     Dates: start: 20000801
  8. FEXOFENADINE HYDROCHLORIDE [Concomitant]
     Route: 065

REACTIONS (5)
  - CALCIUM DEFICIENCY [None]
  - FEMUR FRACTURE [None]
  - VITAMIN D DEFICIENCY [None]
  - PNEUMONIA [None]
  - RIB FRACTURE [None]
